FAERS Safety Report 7635377-7 (Version None)
Quarter: 2011Q3

REPORT INFORMATION
  Report Type: 
  Country: None (occurrence: None)
  Receive Date: 20110726
  Receipt Date: 20110719
  Transmission Date: 20111222
  Serious: Yes (Other)
  Sender: FDA-Public Use
  Company Number: FR-ASTELLAS-2011EU004835

PATIENT
  Age: 60 Year
  Sex: Male

DRUGS (3)
  1. TACROLIMUS [Suspect]
     Indication: RENAL AND PANCREAS TRANSPLANT
     Dosage: UNK
     Route: 065
  2. MYCOPHENOLATE MOFETIL [Concomitant]
     Indication: IMMUNOSUPPRESSION
     Dosage: UNK
     Route: 065
  3. PREDNISOLONE [Concomitant]
     Indication: IMMUNOSUPPRESSION
     Dosage: 5 MG/DAY, UNKNOWN/D
     Route: 065

REACTIONS (7)
  - HEPATITIS E [None]
  - COGNITIVE DISORDER [None]
  - CONFUSIONAL STATE [None]
  - APHASIA [None]
  - GUILLAIN-BARRE SYNDROME [None]
  - HEPATITIS CHRONIC ACTIVE [None]
  - SOMNOLENCE [None]
